FAERS Safety Report 9380465 (Version 2)
Quarter: 2013Q3

REPORT INFORMATION
  Report Type: Spontaneous
  Country: FR (occurrence: FR)
  Receive Date: 20130702
  Receipt Date: 20130709
  Transmission Date: 20140515
  Serious: Yes (Hospitalization, Other)
  Sender: FDA-Public Use
  Company Number: FR-009507513-1306FRA011237

PATIENT
  Age: 84 Year
  Sex: Female

DRUGS (9)
  1. FOSAVANCE [Suspect]
     Indication: OSTEOPOROSIS
     Dosage: UNK
     Route: 048
     Dates: start: 20070915, end: 20120130
  2. FOSAVANCE [Suspect]
     Indication: COMPRESSION FRACTURE
  3. OROCAL D3 [Concomitant]
     Indication: OSTEOPOROSIS
  4. OROCAL D3 [Concomitant]
     Indication: COMPRESSION FRACTURE
  5. KARDEGIC [Concomitant]
     Indication: AORTIC VALVE INCOMPETENCE
  6. IPERTEN [Concomitant]
     Indication: HYPERTENSION
  7. LODOZ [Concomitant]
     Indication: HYPERTENSION
  8. LIPANTHYL [Concomitant]
     Indication: HYPERCHOLESTEROLAEMIA
  9. LEXOMIL [Concomitant]
     Indication: ANXIETY

REACTIONS (1)
  - Femur fracture [Not Recovered/Not Resolved]
